FAERS Safety Report 19675954 (Version 5)
Quarter: 2022Q3

REPORT INFORMATION
  Report Type: Report from Study
  Country: CN (occurrence: CN)
  Receive Date: 20210809
  Receipt Date: 20220808
  Transmission Date: 20221027
  Serious: Yes (Other)
  Sender: FDA-Public Use
  Company Number: NVSC2021CN173799

PATIENT
  Age: 71 Year
  Sex: Male
  Weight: 69 kg

DRUGS (3)
  1. PAZOPANIB [Suspect]
     Active Substance: PAZOPANIB
     Indication: Metastatic renal cell carcinoma
     Dosage: 200 MG
     Route: 048
     Dates: start: 20200824, end: 20200830
  2. PAZOPANIB [Suspect]
     Active Substance: PAZOPANIB
     Dosage: 400 MG
     Route: 048
     Dates: start: 20200831, end: 20200907
  3. PAZOPANIB [Suspect]
     Active Substance: PAZOPANIB
     Dosage: 800 MG
     Route: 048
     Dates: start: 20200908, end: 20210903

REACTIONS (12)
  - Choking [Recovering/Resolving]
  - Dry eye [Not Recovered/Not Resolved]
  - Abdominal distension [Not Recovered/Not Resolved]
  - Blood triglycerides increased [Unknown]
  - Dysgeusia [Not Recovered/Not Resolved]
  - Insomnia [Recovering/Resolving]
  - Diarrhoea [Not Recovered/Not Resolved]
  - Dysphonia [Not Recovered/Not Resolved]
  - Cough [Not Recovered/Not Resolved]
  - Decreased appetite [Recovering/Resolving]
  - Asthenia [Not Recovered/Not Resolved]
  - Vertigo [Recovering/Resolving]

NARRATIVE: CASE EVENT DATE: 20200801
